FAERS Safety Report 8707387 (Version 2)
Quarter: 2012Q4

REPORT INFORMATION
  Report Type: 
  Country: US (occurrence: US)
  Receive Date: 20120803
  Receipt Date: 20120911
  Transmission Date: 20130627
  Serious: No
  Sender: FDA-Public Use
  Company Number: US-ASTRAZENECA-2012SE52778

PATIENT
  Age: 71 Year
  Sex: Female
  Weight: 54.9 kg

DRUGS (4)
  1. CRESTOR [Suspect]
     Indication: BLOOD CHOLESTEROL ABNORMAL
     Route: 048
     Dates: start: 20120724
  2. MEDICATION [Concomitant]
     Indication: PAIN
  3. SENECOT [Concomitant]
  4. TYLENOL [Concomitant]

REACTIONS (3)
  - Paraesthesia [Unknown]
  - Muscle spasms [Unknown]
  - Drug intolerance [Unknown]
